FAERS Safety Report 4932025-1 (Version None)
Quarter: 2006Q1

REPORT INFORMATION
  Report Type: 
  Country: None (occurrence: None)
  Receive Date: 20060303
  Receipt Date: 20060222
  Transmission Date: 20060701
  Serious: Yes (Death)
  Sender: FDA-Public Use
  Company Number: JP-BRISTOL-MYERS SQUIBB COMPANY-13293113

PATIENT
  Age: 79 Year
  Sex: Male

DRUGS (1)
  1. TAXOL [Suspect]
     Indication: GASTRIC CANCER
     Route: 042
     Dates: start: 20060209, end: 20060216

REACTIONS (1)
  - ACUTE RESPIRATORY DISTRESS SYNDROME [None]
